FAERS Safety Report 9402811 (Version 1)
Quarter: 2013Q3

REPORT INFORMATION
  Report Type: Spontaneous
  Country: US (occurrence: US)
  Receive Date: 20130716
  Receipt Date: 20130716
  Transmission Date: 20140515
  Serious: No
  Sender: FDA-Public Use
  Company Number: US-TEVA-408666USA

PATIENT
  Age: 25 Year
  Sex: Female
  Weight: 89.89 kg

DRUGS (4)
  1. PARAGARD 380A [Suspect]
     Indication: CONTRACEPTION
     Route: 015
     Dates: start: 20130515
  2. SPARLACTONE [Concomitant]
     Indication: SEBORRHOEA
  3. ADEROL [Concomitant]
     Indication: ATTENTION DEFICIT/HYPERACTIVITY DISORDER
  4. PRILODEL [Concomitant]
     Indication: MENSTRUAL CYCLE MANAGEMENT
     Dates: start: 20130511

REACTIONS (1)
  - Device expulsion [Not Recovered/Not Resolved]
